FAERS Safety Report 20966135 (Version 2)
Quarter: 2022Q2

REPORT INFORMATION
  Report Type: Spontaneous
  Country: US (occurrence: US)
  Receive Date: 20220616
  Receipt Date: 20220622
  Transmission Date: 20220721
  Serious: No
  Sender: FDA-Public Use
  Company Number: US-PFIZER INC-202200787938

PATIENT
  Age: 12 Year
  Sex: Male
  Weight: 31.75 kg

DRUGS (2)
  1. GENOTROPIN [Suspect]
     Active Substance: SOMATROPIN
     Indication: Short stature
     Dosage: 1.2 INJECTION EVERY NIGHT
  2. GENOTROPIN [Suspect]
     Active Substance: SOMATROPIN
     Dosage: 1.2 MG, DAILY

REACTIONS (3)
  - Poor quality device used [Unknown]
  - Device issue [Unknown]
  - Device use issue [Unknown]

NARRATIVE: CASE EVENT DATE: 20220529
